FAERS Safety Report 9716475 (Version 2)
Quarter: 2013Q4

REPORT INFORMATION
  Report Type: Spontaneous
  Country: RU (occurrence: RU)
  Receive Date: 20131127
  Receipt Date: 20131202
  Transmission Date: 20140711
  Serious: Yes (Life-Threatening)
  Sender: FDA-Public Use
  Company Number: RU-SA-2013SA120549

PATIENT
  Age: 25 Year
  Sex: Female
  Weight: 59 kg

DRUGS (1)
  1. CEREZYME [Suspect]
     Indication: GAUCHER^S DISEASE
     Dosage: FREQUENCY- EVERY TWO WEEKS DOSE:33.8 UNIT(S)/KILOGRAM BODYWEIGHT
     Route: 042
     Dates: start: 20080312, end: 20131114

REACTIONS (4)
  - Respiratory disorder [Recovered/Resolved]
  - Aphonia [Recovered/Resolved]
  - Swelling [Recovered/Resolved]
  - Flushing [Recovered/Resolved]
